FAERS Safety Report 20680593 (Version 1)
Quarter: 2022Q2

REPORT INFORMATION
  Report Type: Spontaneous
  Country: JP (occurrence: JP)
  Receive Date: 20220406
  Receipt Date: 20220406
  Transmission Date: 20220721
  Serious: Yes (Other)
  Sender: FDA-Public Use
  Company Number: JP-PFIZER INC-202200495874

PATIENT

DRUGS (1)
  1. EFFEXOR [Suspect]
     Active Substance: VENLAFAXINE HYDROCHLORIDE
     Indication: Depression
     Dosage: 75 MG, DAILY, EVERY TIME FOR 3 MONTHS
     Route: 048

REACTIONS (5)
  - Loss of consciousness [Unknown]
  - Withdrawal syndrome [Unknown]
  - Palpitations [Unknown]
  - Electric shock sensation [Unknown]
  - Parosmia [Unknown]

NARRATIVE: CASE EVENT DATE: 20220301
